FAERS Safety Report 5470591-0 (Version None)
Quarter: 2007Q3

REPORT INFORMATION
  Report Type: 
  Country: None (occurrence: None)
  Receive Date: 20070928
  Receipt Date: 20070918
  Transmission Date: 20080115
  Serious: Yes (Other)
  Sender: FDA-Public Use
  Company Number: PHHO2007BR15740

PATIENT
  Age: 40 Year
  Sex: Male

DRUGS (3)
  1. CLORANA [Suspect]
     Dosage: UNK, UNK
     Dates: start: 20070101
  2. DIOVAN [Suspect]
     Dosage: 320MG DAILY
     Dates: start: 20070101
  3. SELOZOK [Suspect]
     Dates: start: 20070101

REACTIONS (4)
  - DRUG INEFFECTIVE [None]
  - HYPERTENSION [None]
  - PRURITUS [None]
  - WOUND [None]
